FAERS Safety Report 8131424-7 (Version None)
Quarter: 2012Q1

REPORT INFORMATION
  Report Type: 
  Country: None (occurrence: None)
  Receive Date: 20120213
  Receipt Date: 20120131
  Transmission Date: 20120608
  Serious: No
  Sender: FDA-Public Use
  Company Number: US-B.I. PHARMACEUTICALS,INC./RIDGEFIELD-2012-BP-01869BP

PATIENT
  Sex: Female

DRUGS (14)
  1. LASIX [Concomitant]
     Indication: CARDIAC VALVE DISEASE
     Dosage: 40 MG
     Route: 048
     Dates: start: 20100901
  2. COZAAR [Concomitant]
     Indication: CARDIAC DISORDER
     Dosage: 25 MG
     Route: 048
     Dates: start: 20100901
  3. PRILOSEC [Concomitant]
     Indication: DYSPEPSIA
     Dosage: 20 MG
     Route: 048
  4. LASIX [Concomitant]
     Dosage: 80 MG
     Route: 048
     Dates: start: 20100901
  5. POTASSIUM CHLORIDE [Concomitant]
     Indication: SUPPLEMENTATION THERAPY
     Dosage: 20 MEQ
     Route: 048
  6. LANTUS [Concomitant]
     Indication: DIABETES MELLITUS
     Route: 058
  7. DIGOXIN [Concomitant]
     Indication: CARDIAC DISORDER
     Dosage: 250 MCG
     Route: 048
     Dates: start: 20100901
  8. SIMVASTATIN [Concomitant]
     Indication: BLOOD CHOLESTEROL INCREASED
  9. NOVOLIN R [Concomitant]
     Indication: DIABETES MELLITUS
     Route: 058
  10. GLIMEPIRIDE [Concomitant]
     Indication: DIABETES MELLITUS
     Dosage: 4 MG
     Route: 048
  11. GLUCOSAMINE CHONDROITIN PLUS VITAMIN C PLUS VITAMIN PLUS MAGNESIUM [Concomitant]
     Indication: OEDEMA PERIPHERAL
     Route: 048
     Dates: start: 20111201
  12. ASPIRIN [Concomitant]
     Indication: CARDIAC DISORDER
     Dosage: 81 MG
     Route: 048
  13. PRADAXA [Suspect]
     Indication: ATRIAL FIBRILLATION
     Dosage: 300 MG
     Route: 048
     Dates: start: 20111001
  14. METFORMIN HCL [Concomitant]
     Indication: DIABETES MELLITUS
     Dosage: 1000 MG
     Route: 048

REACTIONS (1)
  - OEDEMA PERIPHERAL [None]
